FAERS Safety Report 16853158 (Version 1)
Quarter: 2019Q3

REPORT INFORMATION
  Report Type: Spontaneous
  Country: TW (occurrence: TW)
  Receive Date: 20190925
  Receipt Date: 20190925
  Transmission Date: 20191005
  Serious: Yes (Other)
  Sender: FDA-Public Use
  Company Number: TW-KOWA-19JP002580

PATIENT
  Age: 51 Year
  Sex: Male

DRUGS (2)
  1. LIVALO [Suspect]
     Active Substance: PITAVASTATIN CALCIUM
     Indication: CARDIOVASCULAR DISORDER
     Dosage: 2 MG, QD
     Route: 048
     Dates: start: 201803, end: 20190910
  2. CHINESE MEDICINES (UNSPECIFIED) [Suspect]
     Active Substance: UNSPECIFIED INGREDIENT

REACTIONS (6)
  - Alanine aminotransferase abnormal [Recovering/Resolving]
  - Off label use [Unknown]
  - Drug interaction [Recovering/Resolving]
  - Aspartate aminotransferase abnormal [Recovering/Resolving]
  - Musculoskeletal pain [Recovering/Resolving]
  - Blood creatine phosphokinase increased [Recovering/Resolving]

NARRATIVE: CASE EVENT DATE: 201908
